FAERS Safety Report 5745408-7 (Version None)
Quarter: 2008Q2

REPORT INFORMATION
  Report Type: 
  Country: None (occurrence: None)
  Receive Date: 20080521
  Receipt Date: 20080516
  Transmission Date: 20081010
  Serious: Yes (Hospitalization)
  Sender: FDA-Public Use
  Company Number: BE-TEVA-166227ISR

PATIENT
  Sex: Female
  Weight: 56 kg

DRUGS (13)
  1. FLUOROURACIL [Suspect]
     Route: 040
     Dates: start: 20071227
  2. FLUOROURACIL [Suspect]
     Route: 041
     Dates: start: 20071227
  3. CALCIUM LEVOFOLINATE [Suspect]
     Route: 042
     Dates: start: 20071227
  4. IRINOTECAN HCL [Suspect]
     Route: 042
     Dates: start: 20071227
  5. SANDOSTATIN [Concomitant]
     Route: 058
     Dates: start: 20080108, end: 20080118
  6. SOMATULINE [Concomitant]
     Route: 030
     Dates: start: 20080109, end: 20080109
  7. NADROPARIN CALCIUM [Concomitant]
     Route: 058
     Dates: start: 20080108
  8. LEVOFLOXACIN [Concomitant]
     Route: 042
     Dates: start: 20080108, end: 20080118
  9. MAGNESIUM SULFATE [Concomitant]
     Route: 042
     Dates: start: 20080109, end: 20080110
  10. FLUCONAZOLE [Concomitant]
     Dates: start: 20080108, end: 20080118
  11. SACCHARATED IRON OXIDE [Concomitant]
     Route: 042
     Dates: start: 20071210, end: 20071210
  12. EPOETIN ALFA [Concomitant]
  13. ZOLPIDEM [Concomitant]
     Route: 048

REACTIONS (3)
  - DEHYDRATION [None]
  - DIARRHOEA [None]
  - FUNGAL INFECTION [None]
